FAERS Safety Report 17055176 (Version 2)
Quarter: 2019Q4

REPORT INFORMATION
  Report Type: Spontaneous
  Country: CN (occurrence: CN)
  Receive Date: 20191120
  Receipt Date: 20191122
  Transmission Date: 20200122
  Serious: Yes (Hospitalization)
  Sender: FDA-Public Use
  Company Number: CN-NOVOPROD-691545

PATIENT
  Age: 75 Year
  Sex: Male
  Weight: 85 kg

DRUGS (4)
  1. METFORMIN [Concomitant]
     Active Substance: METFORMIN HYDROCHLORIDE
     Indication: TYPE 2 DIABETES MELLITUS
     Dosage: 1 DF, QD (1 TABLET PER DAY)
     Route: 065
  2. NOVOMIX 30 PENFILL [Suspect]
     Active Substance: INSULIN ASPART
     Indication: TYPE 2 DIABETES MELLITUS
     Dosage: 7-8 YEARS
     Route: 065
  3. NOVOMIX 30 PENFILL [Suspect]
     Active Substance: INSULIN ASPART
     Dosage: 30 IU, QD
     Route: 065
     Dates: start: 201910
  4. NOVOMIX 30 PENFILL [Suspect]
     Active Substance: INSULIN ASPART
     Dosage: 30 IU, QD (16 IU IN THE MORNING, 14 IU AT NIGHT)
     Route: 065

REACTIONS (4)
  - Drug ineffective [Unknown]
  - Liquid product physical issue [Unknown]
  - Diabetes with hyperosmolarity [Unknown]
  - Suspected product quality issue [Unknown]
